FAERS Safety Report 4937051-4 (Version None)
Quarter: 2006Q1

REPORT INFORMATION
  Report Type: 
  Country: None (occurrence: None)
  Receive Date: 20060309
  Receipt Date: 20051019
  Transmission Date: 20060701
  Serious: Yes (Hospitalization, Other)
  Sender: FDA-Public Use
  Company Number: US-MERCK-0510USA08182

PATIENT
  Age: 56 Year
  Sex: Female
  Weight: 91 kg

DRUGS (25)
  1. VIOXX [Suspect]
     Indication: PAIN IN EXTREMITY
     Route: 048
     Dates: start: 20030401, end: 20040601
  2. VIOXX [Suspect]
     Route: 048
  3. VIOXX [Suspect]
     Indication: CHEST PAIN
     Route: 048
     Dates: start: 20030401, end: 20040601
  4. VIOXX [Suspect]
     Route: 048
  5. NEURONTIN [Concomitant]
     Indication: SURGERY
     Route: 065
     Dates: start: 20020101, end: 20050101
  6. NEURONTIN [Concomitant]
     Route: 065
     Dates: start: 20020101, end: 20050101
  7. PREMARIN [Concomitant]
     Indication: HYSTERECTOMY
     Route: 065
     Dates: start: 20000101, end: 20050701
  8. WELLBUTRIN [Concomitant]
     Route: 065
  9. TYLENOL (CAPLET) [Concomitant]
     Route: 065
     Dates: start: 20040101, end: 20050901
  10. PROCARDIA XL [Concomitant]
     Indication: BLOOD PRESSURE
     Route: 065
     Dates: start: 20000101
  11. CLARITIN [Concomitant]
     Route: 065
  12. VICOPROFEN [Concomitant]
     Route: 065
  13. NAPROSYN [Concomitant]
     Route: 065
     Dates: start: 20020101
  14. FUROSEMIDE [Concomitant]
     Route: 065
  15. CELEBREX [Concomitant]
     Route: 065
     Dates: start: 20020101
  16. VICODIN [Concomitant]
     Route: 065
  17. DIOVAN [Concomitant]
     Indication: BLOOD PRESSURE
     Route: 065
     Dates: start: 20040701, end: 20051001
  18. CLONIDINE [Concomitant]
     Indication: BLOOD PRESSURE ABNORMAL
     Route: 065
     Dates: start: 20040101, end: 20050101
  19. CARDIZEM [Concomitant]
     Route: 065
     Dates: start: 20040101, end: 20050101
  20. LIPITOR [Concomitant]
     Indication: BLOOD CHOLESTEROL ABNORMAL
     Route: 065
     Dates: start: 20040101, end: 20051011
  21. ADVIL [Concomitant]
     Route: 065
     Dates: start: 20040101, end: 20050901
  22. PREMPRO [Concomitant]
     Route: 065
     Dates: start: 20000101, end: 20050701
  23. ZOLOFT [Concomitant]
     Route: 065
     Dates: start: 20040101, end: 20050101
  24. ZYPREXA [Concomitant]
     Route: 065
     Dates: start: 20040101, end: 20040101
  25. DIURETIC (UNSPECIFIED) [Concomitant]
     Route: 065
     Dates: start: 20040101, end: 20040101

REACTIONS (21)
  - ADVERSE EVENT [None]
  - ANXIETY [None]
  - ASTHMA [None]
  - BALANCE DISORDER [None]
  - BLOOD CHOLESTEROL INCREASED [None]
  - CARDIAC DISORDER [None]
  - CARDIAC FAILURE CONGESTIVE [None]
  - CHEST PAIN [None]
  - DIABETES MELLITUS [None]
  - DYSPNOEA [None]
  - FATIGUE [None]
  - GASTRIC DISORDER [None]
  - HYPERTENSION [None]
  - MUSCULOSKELETAL DISORDER [None]
  - MYOCARDIAL INFARCTION [None]
  - NERVOUSNESS [None]
  - OEDEMA [None]
  - OVARIAN NEOPLASM [None]
  - PAIN [None]
  - PANIC DISORDER [None]
  - STRESS [None]
